FAERS Safety Report 21086873 (Version 1)
Quarter: 2022Q3

REPORT INFORMATION
  Report Type: Spontaneous
  Country: US (occurrence: US)
  Receive Date: 20220715
  Receipt Date: 20220715
  Transmission Date: 20221027
  Serious: No
  Sender: FDA-Public Use
  Company Number: US-GSK-US2022AMR103744

PATIENT
  Age: 47 Year
  Sex: Female
  Weight: 58.957 kg

DRUGS (2)
  1. IMITREX [Suspect]
     Active Substance: SUMATRIPTAN SUCCINATE
     Indication: Migraine
     Dosage: 1 DF, Z, ONCE A MONTH
  2. NURTEC ODT [Suspect]
     Active Substance: RIMEGEPANT SULFATE
     Indication: Migraine
     Dosage: 1 PUFF(S), 75 MG , EVERY OTHER DAY
     Route: 048
     Dates: start: 20220520

REACTIONS (1)
  - Drug ineffective [Unknown]
